FAERS Safety Report 15707870 (Version 1)
Quarter: 2018Q4

REPORT INFORMATION
  Report Type: Spontaneous
  Country: JP (occurrence: JP)
  Receive Date: 20181211
  Receipt Date: 20181211
  Transmission Date: 20190205
  Serious: Yes (Other)
  Sender: FDA-Public Use
  Company Number: JP-009507513-1812JPN000794J

PATIENT
  Age: 9 Decade
  Sex: Male

DRUGS (1)
  1. NASONEX [Suspect]
     Active Substance: MOMETASONE FUROATE
     Indication: PRODUCTIVE COUGH
     Dosage: UNK
     Route: 045

REACTIONS (2)
  - Aspiration [Unknown]
  - Drug ineffective [Unknown]
